FAERS Safety Report 8797108 (Version 3)
Quarter: 2013Q4

REPORT INFORMATION
  Report Type: Spontaneous
  Country: GB (occurrence: GB)
  Receive Date: 20120919
  Receipt Date: 20131007
  Transmission Date: 20140711
  Serious: Yes (Hospitalization, Other)
  Sender: FDA-Public Use
  Company Number: CHPA2012GB019556

PATIENT
  Sex: 0

DRUGS (6)
  1. SCOPODERM TTS [Suspect]
     Indication: SALIVARY HYPERSECRETION
     Dosage: 1MG RELEASED OVER 3 DAYS
     Route: 062
     Dates: start: 20120313, end: 20120329
  2. DICLOFENAC [Suspect]
     Dosage: UNK, UNK
     Dates: start: 20120223
  3. CO-CODAMOL [Suspect]
     Dosage: UNK, UNK
     Dates: start: 20120223
  4. CO-AMOXICLAV [Suspect]
     Dosage: UNK, UNK
     Dates: start: 20120226
  5. ANAESTHETIC [Concomitant]
     Indication: PAROTIDECTOMY
     Dates: start: 20120223
  6. ANAESTHETIC [Concomitant]
     Dates: start: 20120306

REACTIONS (30)
  - Malaise [Not Recovered/Not Resolved]
  - Sinus arrhythmia [Not Recovered/Not Resolved]
  - Bradycardia [Unknown]
  - Accommodation disorder [Not Recovered/Not Resolved]
  - Gastrointestinal motility disorder [Not Recovered/Not Resolved]
  - Change of bowel habit [Not Recovered/Not Resolved]
  - Cough [Not Recovered/Not Resolved]
  - Dry throat [Not Recovered/Not Resolved]
  - Oral discomfort [Not Recovered/Not Resolved]
  - Fatigue [Not Recovered/Not Resolved]
  - Gastrooesophageal reflux disease [Not Recovered/Not Resolved]
  - Irritability [Not Recovered/Not Resolved]
  - Visual acuity reduced [Not Recovered/Not Resolved]
  - Mood altered [Not Recovered/Not Resolved]
  - Withdrawal syndrome [Unknown]
  - Asthenia [Not Recovered/Not Resolved]
  - Aggression [Not Recovered/Not Resolved]
  - Dizziness [Not Recovered/Not Resolved]
  - Dry mouth [Not Recovered/Not Resolved]
  - Poor quality sleep [Not Recovered/Not Resolved]
  - Palpitations [Unknown]
  - Dry eye [Not Recovered/Not Resolved]
  - Depression [Not Recovered/Not Resolved]
  - Dry skin [Recovered/Resolved]
  - Middle insomnia [Not Recovered/Not Resolved]
  - Nausea [Recovering/Resolving]
  - Somnolence [Not Recovered/Not Resolved]
  - Headache [Not Recovered/Not Resolved]
  - Off label use [Unknown]
  - Therapeutic response unexpected [Unknown]
